FAERS Safety Report 7364391-4 (Version None)
Quarter: 2011Q1

REPORT INFORMATION
  Report Type: 
  Country: None (occurrence: None)
  Receive Date: 20110321
  Receipt Date: 20110311
  Transmission Date: 20110831
  Serious: Yes (Hospitalization)
  Sender: FDA-Public Use
  Company Number: US-JNJFOC-20110203695

PATIENT
  Sex: Male
  Weight: 122.47 kg

DRUGS (8)
  1. REMICADE [Suspect]
     Indication: PSORIATIC ARTHROPATHY
     Route: 042
  2. ZOCOR [Concomitant]
     Indication: BLOOD CHOLESTEROL
     Dosage: DAILY
     Route: 048
  3. OXYCONTIN [Concomitant]
     Indication: PAIN
     Dosage: DAILY
     Route: 048
  4. MARIJUANA [Concomitant]
     Indication: PRODUCT USED FOR UNKNOWN INDICATION
     Dosage: DAILY
  5. OXYCODONE [Concomitant]
     Indication: PAIN
     Dosage: DAILY
     Route: 048
  6. ZOLOFT [Concomitant]
     Indication: DEPRESSION
     Dosage: DAILY
     Route: 048
  7. BENICAR [Concomitant]
     Indication: PRODUCT USED FOR UNKNOWN INDICATION
     Route: 048
  8. TRAZODONE [Concomitant]
     Indication: SLEEP DISORDER
     Dosage: DAILY
     Route: 048

REACTIONS (6)
  - DIZZINESS [None]
  - UPPER LIMB FRACTURE [None]
  - FRACTURE [None]
  - VISION BLURRED [None]
  - FALL [None]
  - HAND FRACTURE [None]
